FAERS Safety Report 9034455 (Version 1)
Quarter: 2013Q1

REPORT INFORMATION
  Report Type: Spontaneous
  Country: US (occurrence: None)
  Receive Date: 20130116
  Receipt Date: 20130116
  Transmission Date: 20140127
  Serious: Yes (Death)
  Sender: FDA-Public Use
  Company Number: None

PATIENT
  Age: 62 Year
  Sex: Male

DRUGS (7)
  1. XTANDI [Suspect]
     Route: 048
     Dates: start: 20121214, end: 20130103
  2. DEXAMETHASONE [Concomitant]
  3. MORPHINE [Concomitant]
  4. LORAZEPAM [Concomitant]
  5. ATROPINE EYE DROPS [Concomitant]
  6. FUROSEMIDE [Concomitant]
  7. PREDNISONE [Concomitant]

REACTIONS (1)
  - Death [None]
